FAERS Safety Report 7001760-6 (Version None)
Quarter: 2010Q3

REPORT INFORMATION
  Report Type: 
  Country: None (occurrence: None)
  Receive Date: 20100920
  Receipt Date: 20100331
  Transmission Date: 20110219
  Serious: Yes (Other)
  Sender: FDA-Public Use
  Company Number: US-ASTRAZENECA-2009SE17941

PATIENT
  Age: 12673 Day
  Sex: Male
  Weight: 113.4 kg

DRUGS (11)
  1. SEROQUEL [Suspect]
     Dosage: 25-600MG
     Route: 048
     Dates: start: 20050906, end: 20061120
  2. CLONAZEPAM [Concomitant]
     Dates: start: 20051011
  3. LAMICTAL [Concomitant]
     Indication: NERVOUS SYSTEM DISORDER
     Dates: start: 20051219
  4. FLUOXETINE [Concomitant]
     Dates: start: 20060213
  5. DEPAKOTE ER [Concomitant]
     Dosage: 100-1500 MG
     Dates: start: 20060828
  6. ZOLOFT [Concomitant]
     Dates: start: 20060828
  7. PAXIL [Concomitant]
     Dates: start: 20060828
  8. LEXAPRO [Concomitant]
     Dates: start: 20060828
  9. WELLBUTRIN [Concomitant]
     Dates: start: 20060828
  10. TRILEPTAL [Concomitant]
     Dates: start: 20050809
  11. TOPAMAX [Concomitant]
     Dates: start: 20050803

REACTIONS (3)
  - DIABETES MELLITUS INADEQUATE CONTROL [None]
  - TYPE 2 DIABETES MELLITUS [None]
  - VISION BLURRED [None]
